FAERS Safety Report 22066290 (Version 1)
Quarter: 2023Q1

REPORT INFORMATION
  Report Type: Other
  Country: None (occurrence: CA)
  Receive Date: 20230306
  Receipt Date: 20230306
  Transmission Date: 20230417
  Serious: Yes (Other)
  Sender: FDA-Public Use
  Company Number: CA-Person and Covey-2138725

PATIENT
  Sex: Male

DRUGS (1)
  1. ALUMINUM CHLORIDE [Suspect]
     Active Substance: ALUMINUM CHLORIDE
     Indication: Specialist consultation
     Route: 003
     Dates: start: 20220207

REACTIONS (1)
  - Rash [Recovering/Resolving]

NARRATIVE: CASE EVENT DATE: 20230207
